FAERS Safety Report 23177721 (Version 1)
Quarter: 2023Q4

REPORT INFORMATION
  Report Type: Spontaneous
  Country: US (occurrence: US)
  Receive Date: 20231113
  Receipt Date: 20231113
  Transmission Date: 20240109
  Serious: No
  Sender: FDA-Public Use
  Company Number: US-PERRIGO-23US008136

PATIENT

DRUGS (2)
  1. POLYETHYLENE GLYCOL 3350 [Suspect]
     Active Substance: POLYETHYLENE GLYCOL 3350
     Indication: Bowel movement irregularity
     Dosage: UNKNOWN, UNKNOWN
     Route: 048
     Dates: start: 20230709, end: 20230709
  2. POLYETHYLENE GLYCOL 3350 [Suspect]
     Active Substance: POLYETHYLENE GLYCOL 3350
     Dosage: UNKNOWN, QD
     Route: 048
     Dates: start: 20230717, end: 20230718

REACTIONS (6)
  - Muscle spasms [Unknown]
  - Abdominal pain upper [Unknown]
  - Headache [Unknown]
  - Nausea [Unknown]
  - Therapeutic product effect decreased [Unknown]
  - Expired product administered [Recovered/Resolved]

NARRATIVE: CASE EVENT DATE: 20230701
